FAERS Safety Report 6774781-6 (Version None)
Quarter: 2010Q2

REPORT INFORMATION
  Report Type: 
  Country: None (occurrence: None)
  Receive Date: 20100617
  Receipt Date: 20100611
  Transmission Date: 20101027
  Serious: Yes (Life-Threatening, Hospitalization, Disabling, Other)
  Sender: FDA-Public Use
  Company Number: US-BAYER-201025352NA

PATIENT
  Sex: Male

DRUGS (1)
  1. BETASERON [Suspect]
     Indication: MULTIPLE SCLEROSIS
     Dosage: TOTAL DAILY DOSE: 2 MIU
     Route: 058
     Dates: start: 20061201

REACTIONS (7)
  - ABASIA [None]
  - CONVULSION [None]
  - GENERAL PHYSICAL HEALTH DETERIORATION [None]
  - MOBILITY DECREASED [None]
  - PAIN [None]
  - RASH GENERALISED [None]
  - RESPIRATORY ARREST [None]
